FAERS Safety Report 6412379-X (Version None)
Quarter: 2009Q4

REPORT INFORMATION
  Report Type: 
  Country: None (occurrence: None)
  Receive Date: 20091023
  Receipt Date: 20091014
  Transmission Date: 20100525
  Serious: Yes (Other)
  Sender: FDA-Public Use
  Company Number: DK-ABBOTT-09P-044-0596041-00

PATIENT
  Sex: Male
  Weight: 63 kg

DRUGS (9)
  1. HUMIRA [Suspect]
     Indication: RHEUMATOID ARTHRITIS
     Route: 058
     Dates: start: 20090205, end: 20090504
  2. HUMIRA [Suspect]
     Route: 058
     Dates: start: 20090819, end: 20090819
  3. METHOTREXATE [Suspect]
     Indication: RHEUMATOID ARTHRITIS
     Dates: start: 20090205, end: 20090819
  4. PREDNISOLONE [Concomitant]
     Indication: RHEUMATOID ARTHRITIS
     Route: 048
     Dates: start: 20090902
  5. PANTOPRAZOL [Concomitant]
     Indication: ABDOMINAL PAIN UPPER
     Dates: start: 20090122, end: 20090325
  6. PANTOPRAZOL [Concomitant]
     Dates: start: 20090325
  7. FOLIC ACID [Concomitant]
     Indication: VITAMIN SUPPLEMENTATION
     Dates: start: 20090205
  8. PARACETAMOL [Concomitant]
     Indication: PAIN
     Dates: start: 20090205
  9. CODEINE [Concomitant]
     Indication: PAIN
     Dates: start: 20090819

REACTIONS (3)
  - LEUKOPENIA [None]
  - NEUTROPENIA [None]
  - WEIGHT DECREASED [None]
